FAERS Safety Report 9302623 (Version 1)
Quarter: 2013Q2

REPORT INFORMATION
  Report Type: Report from Study
  Country: US (occurrence: None)
  Receive Date: 20130516
  Receipt Date: 20130516
  Transmission Date: 20140414
  Serious: Yes (Hospitalization)
  Sender: FDA-Public Use
  Company Number: ACO_35963_2013

PATIENT
  Age: 59 Year
  Sex: Female

DRUGS (9)
  1. AMPYRA (DALFAMPRIDINE) TABLET, 10MG [Suspect]
     Indication: GAIT DISTURBANCE
     Route: 048
  2. AMPYRA (DALFAMPRIDINE) TABLET, 10MG [Suspect]
     Indication: MULTIPLE SCLEROSIS
     Route: 048
  3. TYSABRI (NATALIZUMAB) [Suspect]
     Indication: PRODUCT USED FOR UNKNOWN INDICATION
     Dates: start: 2013, end: 201303
  4. CYMBALTA (DULOXETINE HYDROCHLORIDE) [Concomitant]
  5. NEXIUM (ESOMEPRAZOLE MAGNESIUM) [Concomitant]
  6. TRAMADOL (TRAMADOL) [Concomitant]
  7. DIAZEPAM (DIAZEPAM) [Concomitant]
  8. CALCIUM ( CALCIUM) [Concomitant]
  9. ACETAMIOPHEN W/CODEINE (ACETAMINOPHEN W/CODEINE) [Concomitant]

REACTIONS (1)
  - Kidney infection [None]
